FAERS Safety Report 11872847 (Version 1)
Quarter: 2015Q4

REPORT INFORMATION
  Report Type: Spontaneous
  Country: US (occurrence: US)
  Receive Date: 20151228
  Receipt Date: 20151228
  Transmission Date: 20160305
  Serious: No
  Sender: FDA-Public Use
  Company Number: US-PFIZER INC-2015431310

PATIENT
  Age: 48 Year
  Sex: Female

DRUGS (1)
  1. LYRICA [Suspect]
     Active Substance: PREGABALIN
     Dosage: 75MG CAPSULE X2, DAILY

REACTIONS (4)
  - Mobility decreased [Unknown]
  - Cold sweat [Unknown]
  - Pain [Unknown]
  - Hormone level abnormal [Unknown]
